FAERS Safety Report 15640428 (Version 2)
Quarter: 2018Q4

REPORT INFORMATION
  Report Type: Spontaneous
  Country: US (occurrence: US)
  Receive Date: 20181120
  Receipt Date: 20181129
  Transmission Date: 20190205
  Serious: No
  Sender: FDA-Public Use
  Company Number: US-PFIZER INC-2018476979

PATIENT
  Age: 46 Year
  Sex: Female

DRUGS (1)
  1. QUINAPRIL. [Suspect]
     Active Substance: QUINAPRIL
     Indication: PANIC ATTACK
     Dosage: UNK ( USED TO TAKE QUINAPRIL BUT I AM TRYING NOT TO, I CUT DOWN)

REACTIONS (2)
  - Intentional product use issue [Unknown]
  - Malaise [Unknown]
